FAERS Safety Report 16689647 (Version 5)
Quarter: 2020Q1

REPORT INFORMATION
  Report Type: Spontaneous
  Country: US (occurrence: US)
  Receive Date: 20190809
  Receipt Date: 20200110
  Transmission Date: 20200409
  Serious: Yes (Hospitalization)
  Sender: FDA-Public Use
  Company Number: US-ACTELION-A-NJ2019-194131

PATIENT
  Age: 53 Year
  Sex: Female
  Weight: 55.78 kg

DRUGS (3)
  1. ADEMPAS [Concomitant]
     Active Substance: RIOCIGUAT
  2. OPSUMIT [Suspect]
     Active Substance: MACITENTAN
     Indication: PULMONARY ARTERIAL HYPERTENSION
     Dosage: 10 MG, QD
     Route: 048
  3. REMODULIN [Concomitant]
     Active Substance: TREPROSTINIL

REACTIONS (6)
  - Infusion site swelling [Recovering/Resolving]
  - Infusion site discomfort [Unknown]
  - Hospitalisation [Unknown]
  - Headache [Recovered/Resolved]
  - Infusion site pain [Recovering/Resolving]
  - Catheter site bruise [Unknown]

NARRATIVE: CASE EVENT DATE: 201911
